FAERS Safety Report 7681580-X (Version None)
Quarter: 2011Q3

REPORT INFORMATION
  Report Type: 
  Country: None (occurrence: None)
  Receive Date: 20110812
  Receipt Date: 20110803
  Transmission Date: 20111222
  Serious: Yes (Hospitalization)
  Sender: FDA-Public Use
  Company Number: PHHY2011US65501

PATIENT
  Sex: Male

DRUGS (3)
  1. VANCOMYCIN [Concomitant]
     Dosage: UNK UKN, UNK
  2. OXYCONTIN [Concomitant]
     Dosage: UNK UKN, UNK
  3. EXTAVIA [Suspect]
     Indication: MULTIPLE SCLEROSIS
     Dosage: 250 UG, QOD
     Route: 058
     Dates: start: 20110706

REACTIONS (3)
  - CLOSTRIDIAL INFECTION [None]
  - ABDOMINAL PAIN [None]
  - GASTROINTESTINAL DISORDER [None]
